FAERS Safety Report 6230359-4 (Version None)
Quarter: 2009Q2

REPORT INFORMATION
  Report Type: 
  Country: None (occurrence: None)
  Receive Date: 20090611
  Receipt Date: 20090528
  Transmission Date: 20091009
  Serious: Yes (Other)
  Sender: FDA-Public Use
  Company Number: POMP-1000624

PATIENT
  Sex: Male

DRUGS (2)
  1. MYOZYME [Suspect]
     Indication: GLYCOGEN STORAGE DISEASE TYPE II
  2. WARFARIN SODIUM [Suspect]
     Dosage: UNKNOWN DRUG INDICATION (NOT CODED)

REACTIONS (2)
  - DRUG INTERACTION [None]
  - LIVER DISORDER [None]
